FAERS Safety Report 13404253 (Version 1)
Quarter: 2017Q2

REPORT INFORMATION
  Report Type: Spontaneous
  Country: US (occurrence: US)
  Receive Date: 20170405
  Receipt Date: 20170405
  Transmission Date: 20170830
  Serious: No
  Sender: FDA-Public Use
  Company Number: US-BAYER-2017-065170

PATIENT
  Age: 26 Year
  Sex: Female

DRUGS (1)
  1. CLARITIN [Suspect]
     Active Substance: LORATADINE
     Dosage: UNK

REACTIONS (4)
  - Product use in unapproved indication [Unknown]
  - Sinus disorder [Unknown]
  - Nasal congestion [Unknown]
  - Headache [Unknown]
